FAERS Safety Report 25839610 (Version 1)
Quarter: 2025Q3

REPORT INFORMATION
  Report Type: Spontaneous
  Country: GB (occurrence: GB)
  Receive Date: 20250924
  Receipt Date: 20250924
  Transmission Date: 20251021
  Serious: Yes (Disabling, Other)
  Sender: GE HEALTHCARE
  Company Number: None

PATIENT
  Age: 52 Year
  Sex: Female

DRUGS (1)
  1. OMNIPAQUE [Suspect]
     Active Substance: IOHEXOL
     Indication: Computerised tomogram
     Route: 065
     Dates: start: 20250912, end: 20250912

REACTIONS (34)
  - Brain fog [Recovering/Resolving]
  - Arthritis [Recovering/Resolving]
  - Hepatic pain [Recovering/Resolving]
  - Gait disturbance [Recovering/Resolving]
  - Skin mass [Recovering/Resolving]
  - Dry skin [Recovering/Resolving]
  - Nasal dryness [Recovering/Resolving]
  - Rhinalgia [Recovering/Resolving]
  - Vaginal odour [Recovering/Resolving]
  - Nasal congestion [Recovering/Resolving]
  - Lacrimation increased [Recovering/Resolving]
  - Fatigue [Recovering/Resolving]
  - Arthralgia [Recovering/Resolving]
  - Memory impairment [Recovering/Resolving]
  - Dizziness [Recovering/Resolving]
  - Dizziness postural [Recovered/Resolved]
  - Cough [Recovering/Resolving]
  - Nasal oedema [Recovering/Resolving]
  - Eye swelling [Recovered/Resolved]
  - Periorbital swelling [Recovering/Resolving]
  - Ocular hyperaemia [Recovered/Resolved]
  - Nausea [Recovering/Resolving]
  - Face oedema [Recovered/Resolved]
  - Swelling face [Recovered/Resolved]
  - Oedema peripheral [Recovered/Resolved]
  - Headache [Recovering/Resolving]
  - Pain [Unknown]
  - Chills [Recovered/Resolved]
  - Peripheral swelling [Recovered/Resolved]
  - Confusional state [Recovering/Resolving]
  - Vulvovaginal pruritus [Recovering/Resolving]
  - Erythema [Recovered/Resolved]
  - Pruritus [Recovered/Resolved]
  - Peripheral coldness [Recovering/Resolving]

NARRATIVE: CASE EVENT DATE: 20250912
